FAERS Safety Report 8621773-8 (Version None)
Quarter: 2012Q3

REPORT INFORMATION
  Report Type: 
  Country: None (occurrence: None)
  Receive Date: 20120821
  Receipt Date: 20120821
  Transmission Date: 20120928
  Serious: Yes (Disabling, Other)
  Sender: FDA-Public Use
  Company Number: None

PATIENT
  Age: 51 Year
  Sex: Male
  Weight: 90.7194 kg

DRUGS (1)
  1. TOPIRAMATE [Suspect]
     Indication: DEMENTIA
     Dosage: 200MG 1 TABLET @ BEDTIME PO
     Route: 048
     Dates: start: 20050217, end: 20110915

REACTIONS (5)
  - DISTURBANCE IN ATTENTION [None]
  - MEMORY IMPAIRMENT [None]
  - CONFUSIONAL STATE [None]
  - DEMENTIA [None]
  - COGNITIVE DISORDER [None]
